FAERS Safety Report 4386610-9 (Version None)
Quarter: 2004Q2

REPORT INFORMATION
  Report Type: 
  Country: None (occurrence: None)
  Receive Date: 20040629
  Receipt Date: 20040614
  Transmission Date: 20050107
  Serious: Yes (Disabling)
  Sender: FDA-Public Use
  Company Number: GB-GLAXOSMITHKLINE-B0335659A

PATIENT
  Age: 67 Year
  Sex: Female

DRUGS (4)
  1. ROPINIROLE [Suspect]
     Dosage: 3MG THREE TIMES PER DAY
     Route: 048
     Dates: start: 20030131, end: 20040501
  2. GLICLAZIDE [Concomitant]
     Dosage: 40MG PER DAY
     Route: 048
     Dates: start: 20030101
  3. ASPIRIN [Concomitant]
     Indication: PERIPHERAL VASCULAR DISORDER
     Dosage: 75MG TWICE PER DAY
     Route: 048
     Dates: start: 20030201
  4. PERINDOPRIL [Concomitant]
     Indication: HYPERTENSION
     Dosage: 2MG PER DAY
     Route: 048
     Dates: start: 20021101, end: 20031001

REACTIONS (2)
  - COUGH [None]
  - PULMONARY FUNCTION TEST DECREASED [None]
